FAERS Safety Report 21557469 (Version 2)
Quarter: 2022Q4

REPORT INFORMATION
  Report Type: Spontaneous
  Country: GB (occurrence: US)
  Receive Date: 20221105
  Receipt Date: 20221123
  Transmission Date: 20230113
  Serious: Yes (Other)
  Sender: FDA-Public Use
  Company Number: US-AUROBINDO-AUR-APL-2022-046131

PATIENT
  Age: 26 Year
  Sex: Female

DRUGS (10)
  1. CARBOPLATIN [Suspect]
     Active Substance: CARBOPLATIN
     Indication: Lung adenocarcinoma stage IV
     Dosage: UNK(ONE CYCLE)
     Route: 065
  2. CARBOPLATIN [Suspect]
     Active Substance: CARBOPLATIN
     Dosage: UNK(CYCLE 5)
     Route: 065
  3. CARBOPLATIN [Suspect]
     Active Substance: CARBOPLATIN
     Dosage: 640 MILLIGRAM, CYCLICAL (ON AVERAGE, 640 MG (TARGET AUC=5) EVERY 3 WEEKS DISCONTINUED AFTER 5TH CYCL
     Route: 065
  4. PEMETREXED [Suspect]
     Active Substance: PEMETREXED
     Indication: Lung adenocarcinoma stage IV
     Dosage: UNK(ONE CYCLE)
     Route: 065
  5. PEMETREXED [Suspect]
     Active Substance: PEMETREXED
     Dosage: UNK(CYCLE 6)
     Route: 065
  6. PEMETREXED [Suspect]
     Active Substance: PEMETREXED
     Dosage: 500 MILLILITRE PER SQUARE METRE((500 MG/M2)
     Route: 065
  7. PEMETREXED [Suspect]
     Active Substance: PEMETREXED
     Dosage: 800 MILLIGRAM, CYCLICAL (EVERY 3 WEEKS; DISCONTINUED AFTER 6TH CYCLE )
     Route: 065
  8. PEMBROLIZUMAB [Suspect]
     Active Substance: PEMBROLIZUMAB
     Indication: Lung adenocarcinoma stage IV
     Dosage: 200 MILLIGRAM, CYCLICAL(17 CYCLES OF PEMBROLIZUMAB 200MG EVERY 6 WEEKS)
     Route: 065
  9. OLAPARIB [Suspect]
     Active Substance: OLAPARIB
     Indication: Lung adenocarcinoma stage IV
     Dosage: 150 MILLIGRAM, TWO TIMES A DAY(150MG, BID)
     Route: 065
  10. ELIQUIS [Concomitant]
     Active Substance: APIXABAN
     Indication: Pulmonary thrombosis
     Dosage: UNK
     Route: 065

REACTIONS (6)
  - Neuropathy peripheral [Unknown]
  - Thrombocytopenia [Unknown]
  - Nausea [Recovering/Resolving]
  - Alopecia [Unknown]
  - Constipation [Unknown]
  - Anaemia [Unknown]
